FAERS Safety Report 7801673-3 (Version None)
Quarter: 2011Q4

REPORT INFORMATION
  Report Type: 
  Country: None (occurrence: None)
  Receive Date: 20111005
  Receipt Date: 20110926
  Transmission Date: 20120403
  Serious: Yes (Death, Hospitalization, Other)
  Sender: FDA-Public Use
  Company Number: 009933

PATIENT
  Age: 78 Year
  Sex: Female

DRUGS (7)
  1. CARBAMAZEPINE [Suspect]
     Indication: RESTLESS LEGS SYNDROME
     Dosage: 100 MG, DAILY DOSE, ORAL
     Route: 048
     Dates: start: 20091201, end: 20100318
  2. HYDROXYZINE [Concomitant]
  3. CILOSTAZOL [Suspect]
     Dosage: 100 MG, DAILY DOSE, ORAL
     Route: 048
     Dates: start: 20100301, end: 20100318
  4. OMEPRAZOLE [Suspect]
     Dosage: 20 MG, ORAL
     Route: 048
  5. SULPIRIDE (SULPIRIDE) [Concomitant]
  6. CETIRIZINE HCL [Concomitant]
  7. DEFLAZACORT (DEFLAZACORT) [Concomitant]

REACTIONS (13)
  - CULTURE POSITIVE [None]
  - TOXIC EPIDERMAL NECROLYSIS [None]
  - SKIN REACTION [None]
  - STEVENS-JOHNSON SYNDROME [None]
  - URTICARIA [None]
  - NIKOLSKY'S SIGN [None]
  - SEPTIC SHOCK [None]
  - CARDIAC ARREST [None]
  - DRUG INTERACTION [None]
  - METABOLIC DISORDER [None]
  - ENTEROBACTER INFECTION [None]
  - ACINETOBACTER INFECTION [None]
  - STAPHYLOCOCCAL INFECTION [None]
